FAERS Safety Report 4632725-7 (Version None)
Quarter: 2005Q2

REPORT INFORMATION
  Report Type: 
  Country: None (occurrence: None)
  Receive Date: 20050411
  Receipt Date: 20050411
  Transmission Date: 20051028
  Serious: Yes (Life-Threatening, Hospitalization)
  Sender: FDA-Public Use
  Company Number: None

PATIENT
  Age: 62 Year
  Sex: Male
  Weight: 80 kg

DRUGS (1)
  1. WINRHO [Suspect]
     Indication: THROMBOCYTOPENIC PURPURA
     Dosage: 6000 MCG
     Dates: start: 20050401, end: 20050401

REACTIONS (4)
  - CHILLS [None]
  - CHROMATURIA [None]
  - INTRAVASCULAR HAEMOLYSIS [None]
  - PYREXIA [None]
